FAERS Safety Report 4338919-2 (Version None)
Quarter: 2004Q2

REPORT INFORMATION
  Report Type: 
  Country: None (occurrence: None)
  Receive Date: 20040409
  Receipt Date: 20040405
  Transmission Date: 20050107
  Serious: Yes (Death)
  Sender: FDA-Public Use
  Company Number: FR-SHR-04-023630

PATIENT
  Age: 72 Year
  Sex: Male

DRUGS (2)
  1. BETAFERON (INTEFERON BETA - 1B) INJECTION, 250UG [Suspect]
     Dosage: 1 AMP, EVERY 2 D, SUBCUTANEOUS
     Route: 058
     Dates: start: 20010901, end: 20040322
  2. SKELID [Concomitant]

REACTIONS (3)
  - CARDIO-RESPIRATORY ARREST [None]
  - DYSPNOEA [None]
  - PULMONARY EMBOLISM [None]
